FAERS Safety Report 6493406-0 (Version None)
Quarter: 2009Q4

REPORT INFORMATION
  Report Type: 
  Country: None (occurrence: None)
  Receive Date: 20091214
  Receipt Date: 20091201
  Transmission Date: 20100525
  Serious: Yes (Hospitalization)
  Sender: FDA-Public Use
  Company Number: JP-MERCK-0912USA00556

PATIENT
  Age: 76 Year
  Sex: Male

DRUGS (6)
  1. STROMECTOL [Suspect]
     Indication: ACARODERMATITIS
     Route: 048
     Dates: start: 20091126, end: 20091126
  2. STROMECTOL [Suspect]
     Route: 048
     Dates: start: 20091119, end: 20091119
  3. INSULIN [Concomitant]
     Indication: DIABETES MELLITUS
     Route: 058
  4. GLUCOBAY [Concomitant]
     Indication: DIABETES MELLITUS
     Route: 048
  5. ZYLORIC [Concomitant]
     Route: 048
  6. RHYTHMY [Concomitant]
     Route: 048

REACTIONS (1)
  - HYPERCALCAEMIA [None]
